FAERS Safety Report 6096095-2 (Version None)
Quarter: 2009Q1

REPORT INFORMATION
  Report Type: 
  Country: None (occurrence: None)
  Receive Date: 20090227
  Receipt Date: 20080902
  Transmission Date: 20090719
  Serious: Yes (Other)
  Sender: FDA-Public Use
  Company Number: A0745417A

PATIENT
  Age: 38 Year
  Sex: Female

DRUGS (11)
  1. LAMICTAL [Suspect]
     Dosage: 100MG PER DAY
     Route: 048
     Dates: start: 20080805, end: 20080824
  2. UNSPECIFIED MEDICATION [Concomitant]
  3. CLONIDINE [Concomitant]
  4. NALTREXONE [Concomitant]
  5. SEROQUEL [Concomitant]
  6. XANAX [Concomitant]
  7. BACLOFEN [Concomitant]
  8. LEVOXYL [Concomitant]
  9. TRIAMTERENE [Concomitant]
  10. ACYCLOVIR SODIUM [Concomitant]
  11. PROTONIX [Concomitant]

REACTIONS (4)
  - HEPATIC ENZYME INCREASED [None]
  - RASH [None]
  - STOMATITIS [None]
  - VOMITING [None]
